FAERS Safety Report 13347221 (Version 1)
Quarter: 2017Q1

REPORT INFORMATION
  Report Type: Spontaneous
  Country: US (occurrence: US)
  Receive Date: 20170317
  Receipt Date: 20170317
  Transmission Date: 20170428
  Serious: No
  Sender: FDA-Public Use
  Company Number: US-BAYER-2017-046673

PATIENT
  Age: 80 Year
  Sex: Female

DRUGS (2)
  1. MIRALAX [Suspect]
     Active Substance: POLYETHYLENE GLYCOL 3350
     Indication: GASTROINTESTINAL DISORDER
     Route: 048
  2. ENEMA [PHOSPHORIC ACID SODIUM] [Concomitant]

REACTIONS (4)
  - Physical product label issue [None]
  - Dry mouth [Unknown]
  - Product preparation error [Unknown]
  - Product use issue [Unknown]
